FAERS Safety Report 6786686-5 (Version None)
Quarter: 2010Q2

REPORT INFORMATION
  Report Type: 
  Country: None (occurrence: None)
  Receive Date: 20100623
  Receipt Date: 20100614
  Transmission Date: 20101027
  Serious: Yes (Other)
  Sender: FDA-Public Use
  Company Number: US-PFIZER INC-2010074981

PATIENT
  Sex: Male
  Weight: 113 kg

DRUGS (5)
  1. LIPITOR [Suspect]
     Indication: BLOOD CHOLESTEROL INCREASED
     Dosage: 20 MG, DAILY
     Dates: start: 20020101
  2. LIPITOR [Suspect]
     Indication: SURGERY
  3. PROCARDIA [Concomitant]
     Dosage: UNK
  4. LOPRESSOR [Concomitant]
     Dosage: UNK
  5. ZESTORETIC [Concomitant]
     Dosage: UNK

REACTIONS (1)
  - PAIN [None]
